FAERS Safety Report 17178758 (Version 5)
Quarter: 2020Q2

REPORT INFORMATION
  Report Type: Report from Study
  Country: CO (occurrence: CO)
  Receive Date: 20191219
  Receipt Date: 20200624
  Transmission Date: 20200713
  Serious: Yes (Hospitalization, Other)
  Sender: FDA-Public Use
  Company Number: CO-ASTELLAS-2019US050546

PATIENT
  Age: 29 Year
  Sex: Male
  Weight: 58 kg

DRUGS (11)
  1. TACROLIMUS. [Suspect]
     Active Substance: TACROLIMUS
     Route: 048
     Dates: start: 20200407, end: 20200416
  2. ECULIZUMAB [Concomitant]
     Active Substance: ECULIZUMAB
     Indication: PRODUCT USED FOR UNKNOWN INDICATION
     Route: 065
  3. TACROLIMUS. [Suspect]
     Active Substance: TACROLIMUS
     Dosage: 5 MG, ONCE DAILY (5 CAPSULE OF 1 MG)
     Route: 048
     Dates: start: 20200403, end: 20200406
  4. TACROLIMUS. [Suspect]
     Active Substance: TACROLIMUS
     Route: 048
     Dates: start: 20200318, end: 20200402
  5. TACROLIMUS. [Suspect]
     Active Substance: TACROLIMUS
     Dosage: 5 MG, ONCE DAILY (5 CAPSULE OF 1 MG)
     Route: 048
     Dates: start: 20200417
  6. TACROLIMUS. [Suspect]
     Active Substance: TACROLIMUS
     Dosage: 5 MG, ONCE DAILY (5 CAPSULES OF 1MG)
     Route: 048
     Dates: start: 201907, end: 202002
  7. MYCOPHENOLATE [Concomitant]
     Active Substance: MYCOPHENOLIC ACID
     Route: 048
     Dates: start: 20200318
  8. PREDNISOLONE. [Concomitant]
     Active Substance: PREDNISOLONE
     Indication: RENAL TRANSPLANT
     Route: 048
  9. MYCOPHENOLATE [Concomitant]
     Active Substance: MYCOPHENOLIC ACID
     Indication: RENAL TRANSPLANT
     Route: 048
  10. TACROLIMUS. [Suspect]
     Active Substance: TACROLIMUS
     Indication: RENAL TRANSPLANT
     Dosage: 4 MG, ONCE DAILY (4 CAPSULES OF 1MG)
     Route: 048
     Dates: start: 20170309, end: 201907
  11. TACROLIMUS. [Suspect]
     Active Substance: TACROLIMUS
     Dosage: 7 MG, ONCE DAILY (7 CAPSULE OF 1 MG)
     Route: 048
     Dates: start: 202002, end: 20200317

REACTIONS (9)
  - Dehydration [Not Recovered/Not Resolved]
  - Varicella [Recovered/Resolved]
  - Kidney transplant rejection [Recovering/Resolving]
  - Kidney enlargement [Recovered/Resolved]
  - Haemoptysis [Unknown]
  - Secondary immunodeficiency [Recovered/Resolved]
  - Blood test abnormal [Recovering/Resolving]
  - Hypersensitivity [Recovered/Resolved]
  - Cough [Recovering/Resolving]

NARRATIVE: CASE EVENT DATE: 2019
